FAERS Safety Report 9378086 (Version 11)
Quarter: 2016Q3

REPORT INFORMATION
  Report Type: Spontaneous
  Country: US (occurrence: US)
  Receive Date: 20130701
  Receipt Date: 20160908
  Transmission Date: 20161109
  Serious: Yes (Hospitalization, Other)
  Sender: FDA-Public Use
  Company Number: US-GLAXOSMITHKLINE-A1029005A

PATIENT
  Sex: Female

DRUGS (11)
  1. FLOLAN [Suspect]
     Active Substance: EPOPROSTENOL SODIUM
     Dosage: 44 NG/KG/MIN CONTINUOUSLY
  2. REVATIO [Concomitant]
     Active Substance: SILDENAFIL CITRATE
  3. LISINOPRIL. [Concomitant]
     Active Substance: LISINOPRIL
     Indication: PRODUCT USED FOR UNKNOWN INDICATION
     Dosage: UNK
     Dates: start: 201605
  4. FLOLAN [Suspect]
     Active Substance: EPOPROSTENOL SODIUM
     Indication: PULMONARY HYPERTENSION
     Dosage: UNK
     Dates: start: 20090523
  5. FLOLAN [Suspect]
     Active Substance: EPOPROSTENOL SODIUM
     Dosage: 44 NG/KG/MIN, CO
     Route: 042
  6. FLOLAN [Suspect]
     Active Substance: EPOPROSTENOL SODIUM
     Dosage: 58 DF, CO
  7. FLOLAN [Suspect]
     Active Substance: EPOPROSTENOL SODIUM
     Indication: PULMONARY HYPERTENSION
     Dosage: UNK
     Dates: start: 20160808
  8. FLOLAN [Suspect]
     Active Substance: EPOPROSTENOL SODIUM
     Indication: COR PULMONALE CHRONIC
     Dosage: 58 NG/KG/MIN CONTINUOUS;75000 NG/ML, NO PUMP RATE REPORTED, VIAL STRENGTH 1.5 MG
     Route: 042
     Dates: start: 20090109
  9. FLOLAN [Suspect]
     Active Substance: EPOPROSTENOL SODIUM
     Dosage: 58 NG/KG/MIN CO; CONCENTRATION 75,000 NG/ML; PUMP RATE 78 ML/DAY; VIAL STRENGTH 1.5 MG
     Dates: start: 20090109
  10. FLOLAN [Suspect]
     Active Substance: EPOPROSTENOL SODIUM
     Dosage: 44 NG/KG/MIN CONTINUOUS
     Route: 042
     Dates: start: 20090109
  11. ADEMPAS [Suspect]
     Active Substance: RIOCIGUAT
     Indication: PRODUCT USED FOR UNKNOWN INDICATION

REACTIONS (11)
  - Uterine leiomyoma embolisation [Recovering/Resolving]
  - Infusion site extravasation [Unknown]
  - Fall [Unknown]
  - Pneumonia [Unknown]
  - Hand fracture [Unknown]
  - Hospitalisation [Unknown]
  - Fluid retention [Unknown]
  - Hepatic haemorrhage [Unknown]
  - Cough [Unknown]
  - Wrist fracture [Unknown]
  - Hypertension [Unknown]
